FAERS Safety Report 5777093-2 (Version None)
Quarter: 2008Q2

REPORT INFORMATION
  Report Type: 
  Country: None (occurrence: None)
  Receive Date: 20080616
  Receipt Date: 20070319
  Transmission Date: 20081010
  Serious: Yes (Death, Hospitalization)
  Sender: FDA-Public Use
  Company Number: DE-JNJFOC-20070304694

PATIENT
  Age: 76 Year
  Sex: Male
  Weight: 95 kg

DRUGS (6)
  1. DECITABINE (DECITABINE) LYOPHILIZED POWDER [Suspect]
     Indication: DRUG USE FOR UNKNOWN INDICATION
     Dosage: 297 MG, INTRAVENOUS
     Route: 042
     Dates: start: 20060926, end: 20070130
  2. ALLUPURINOL (ALLOPURINOL) [Concomitant]
  3. HEXORAL (HEXETIDINE) [Concomitant]
  4. AMPHOMORONAL (AMPHOTERICIN B) [Concomitant]
  5. LEVOFLOXACIN [Concomitant]
  6. BACTRIM [Concomitant]

REACTIONS (12)
  - BLOOD CALCIUM DECREASED [None]
  - BLOOD SODIUM DECREASED [None]
  - COAGULOPATHY [None]
  - DISSEMINATED INTRAVASCULAR COAGULATION [None]
  - DRUG INTERACTION [None]
  - HAEMATOCRIT DECREASED [None]
  - HAEMATURIA [None]
  - HAEMOGLOBIN DECREASED [None]
  - INTERNATIONAL NORMALISED RATIO INCREASED [None]
  - NEPHROLITHIASIS [None]
  - URINARY BLADDER HAEMORRHAGE [None]
  - VARICOSE VEIN [None]
